FAERS Safety Report 25347981 (Version 1)
Quarter: 2025Q2

REPORT INFORMATION
  Report Type: Spontaneous
  Country: US (occurrence: US)
  Receive Date: 20250522
  Receipt Date: 20250522
  Transmission Date: 20250716
  Serious: No
  Sender: MYLAN
  Company Number: US-MYLANLABS-2025M1021470

PATIENT
  Sex: Male
  Weight: 132.45 kg

DRUGS (1)
  1. WIXELA INHUB [Suspect]
     Active Substance: FLUTICASONE PROPIONATE\SALMETEROL XINAFOATE
     Indication: Asthma
     Dosage: 250/50 MICROGRAM, BID (TWICE A DAY)
     Dates: start: 20250226

REACTIONS (7)
  - Influenza [Unknown]
  - Cough [Unknown]
  - Productive cough [Unknown]
  - Dysphonia [Unknown]
  - Dyspnoea [Unknown]
  - Device delivery system issue [Unknown]
  - Device malfunction [Unknown]
